FAERS Safety Report 5822850-7 (Version None)
Quarter: 2008Q3

REPORT INFORMATION
  Report Type: 
  Country: None (occurrence: None)
  Receive Date: 20080724
  Receipt Date: 20080724
  Transmission Date: 20090109
  Serious: Yes (Life-Threatening)
  Sender: FDA-Public Use
  Company Number: None

PATIENT
  Sex: Female
  Weight: 63.5036 kg

DRUGS (1)
  1. NEURONTIN [Suspect]
     Indication: NEUROPATHY PERIPHERAL
     Dosage: ONE A DAY PO
     Route: 048
     Dates: start: 20080614, end: 20080614

REACTIONS (2)
  - DISORIENTATION [None]
  - LOSS OF CONSCIOUSNESS [None]
